FAERS Safety Report 9642031 (Version 1)
Quarter: 2013Q4

REPORT INFORMATION
  Report Type: Spontaneous
  Country: CA (occurrence: CA)
  Receive Date: 20131023
  Receipt Date: 20131023
  Transmission Date: 20140711
  Serious: Yes (Death)
  Sender: FDA-Public Use
  Company Number: CA-BAXTER-2013BAX040863

PATIENT
  Age: 73 Year
  Sex: Male

DRUGS (2)
  1. DIANEAL PD4 SOLUTION WITH 4.25% DEXTROSE AND 2.5 MEQ/L CALCIUM [Suspect]
     Indication: NEPHROPATHY
     Route: 033
     Dates: start: 20131011, end: 20131014
  2. DIANEAL PD4 SOLUTION WITH 4.25% DEXTROSE AND 2.5 MEQ/L CALCIUM [Suspect]
     Indication: PERITONEAL DIALYSIS

REACTIONS (1)
  - Cardiac failure [Fatal]
